FAERS Safety Report 9538799 (Version 2)
Quarter: 2013Q4

REPORT INFORMATION
  Report Type: Report from Study
  Country: IN (occurrence: IN)
  Receive Date: 20130920
  Receipt Date: 20131014
  Transmission Date: 20140711
  Serious: Yes (Hospitalization)
  Sender: FDA-Public Use
  Company Number: PHHY2013IN104482

PATIENT
  Age: 69 Year
  Sex: Female

DRUGS (2)
  1. ACLASTA [Suspect]
     Indication: OSTEOPOROSIS
     Dosage: 5 MG/100 ML/YEAR
     Route: 042
     Dates: start: 20110911
  2. ACLASTA [Suspect]
     Dosage: 5 MG/100 ML/YEAR
     Route: 042
     Dates: start: 20120911

REACTIONS (2)
  - Femur fracture [Unknown]
  - Drug ineffective [Unknown]
